FAERS Safety Report 24390044 (Version 1)
Quarter: 2024Q4

REPORT INFORMATION
  Report Type: Spontaneous
  Country: US (occurrence: US)
  Receive Date: 20241003
  Receipt Date: 20241003
  Transmission Date: 20250115
  Serious: Yes (Hospitalization)
  Sender: ABBVIE
  Company Number: US-ABBVIE-5944266

PATIENT
  Age: 68 Year
  Sex: Male

DRUGS (2)
  1. CYCLOSPORINE [Suspect]
     Active Substance: CYCLOSPORINE
     Indication: Erythrodermic psoriasis
     Dosage: 2 DIVIDED DOSES
     Route: 048
  2. ACITRETIN [Suspect]
     Active Substance: ACITRETIN
     Indication: Erythrodermic psoriasis
     Route: 048

REACTIONS (9)
  - Septic shock [Unknown]
  - Erythrodermic psoriasis [Unknown]
  - Endocarditis [Unknown]
  - Shock haemorrhagic [Unknown]
  - Candida sepsis [Unknown]
  - Fungaemia [Unknown]
  - Pseudomonal sepsis [Unknown]
  - Bacteraemia [Unknown]
  - Aortic aneurysm rupture [Unknown]
